FAERS Safety Report 13836979 (Version 1)
Quarter: 2017Q3

REPORT INFORMATION
  Report Type: Spontaneous
  Country: US (occurrence: US)
  Receive Date: 20170804
  Receipt Date: 20170804
  Transmission Date: 20171127
  Serious: No
  Sender: FDA-Public Use
  Company Number: US-ROCHE-1003054

PATIENT
  Age: 78 Year
  Sex: Female

DRUGS (1)
  1. BONVIVA [Suspect]
     Active Substance: IBANDRONATE SODIUM
     Indication: OSTEOPOROSIS
     Route: 065

REACTIONS (8)
  - Abdominal pain upper [Unknown]
  - Back pain [Unknown]
  - Pyrexia [Unknown]
  - Diarrhoea [Unknown]
  - Paraesthesia [Unknown]
  - Arthralgia [Unknown]
  - Bone pain [Unknown]
  - Nausea [Unknown]
